FAERS Safety Report 5888814-2 (Version None)
Quarter: 2008Q3

REPORT INFORMATION
  Report Type: 
  Country: None (occurrence: None)
  Receive Date: 20080917
  Receipt Date: 20080917
  Transmission Date: 20090109
  Serious: No
  Sender: FDA-Public Use
  Company Number: None

PATIENT
  Age: 79 Year
  Sex: Female
  Weight: 78.4723 kg

DRUGS (1)
  1. ACTONEL [Suspect]
     Indication: BONE DENSITOMETRY
     Dosage: 1 TABLET MONTHLY
     Dates: start: 20080907

REACTIONS (8)
  - ABDOMINAL PAIN UPPER [None]
  - BLOOD PRESSURE ABNORMAL [None]
  - CARDIAC DISORDER [None]
  - DIARRHOEA [None]
  - MALAISE [None]
  - OEDEMA PERIPHERAL [None]
  - RESPIRATORY DISORDER [None]
  - VOMITING [None]
